FAERS Safety Report 20010677 (Version 1)
Quarter: 2021Q4

REPORT INFORMATION
  Report Type: Spontaneous
  Country: FR (occurrence: FR)
  Receive Date: 20211028
  Receipt Date: 20211028
  Transmission Date: 20220303
  Serious: Yes (Other)
  Sender: FDA-Public Use
  Company Number: FR-EXELTIS PHARMACEUTICAL HOLDING, S.L.-2110FR02450

PATIENT
  Age: 49 Year
  Sex: Female

DRUGS (1)
  1. DROSPIRENONE [Suspect]
     Active Substance: DROSPIRENONE
     Indication: Contraception
     Dosage: 4 MILLIGRAM, QD
     Route: 048

REACTIONS (1)
  - Phlebitis deep [Unknown]

NARRATIVE: CASE EVENT DATE: 20211001
